FAERS Safety Report 7334584-0 (Version None)
Quarter: 2011Q1

REPORT INFORMATION
  Report Type: 
  Country: None (occurrence: None)
  Receive Date: 20110307
  Receipt Date: 20101012
  Transmission Date: 20110831
  Serious: No
  Sender: FDA-Public Use
  Company Number: A0887730A

PATIENT
  Age: 65 Year

DRUGS (1)
  1. REQUIP [Suspect]
     Route: 065

REACTIONS (3)
  - DRUG ADMINISTRATION ERROR [None]
  - RESTLESS LEGS SYNDROME [None]
  - SOMNOLENCE [None]
